FAERS Safety Report 8400423-X (Version None)
Quarter: 2012Q2

REPORT INFORMATION
  Report Type: 
  Country: None (occurrence: None)
  Receive Date: 20120531
  Receipt Date: 20120522
  Transmission Date: 20120825
  Serious: Yes (Hospitalization)
  Sender: FDA-Public Use
  Company Number: US-US-EMD SERONO, INC.-7025003

PATIENT
  Sex: Male

DRUGS (1)
  1. REBIF [Suspect]
     Indication: PRODUCT USED FOR UNKNOWN INDICATION
     Dates: start: 20100904, end: 20101020

REACTIONS (4)
  - HEMIPARESIS [None]
  - PNEUMONIA PRIMARY ATYPICAL [None]
  - PAIN [None]
  - FATIGUE [None]
